FAERS Safety Report 6215667-5 (Version None)
Quarter: 2009Q2

REPORT INFORMATION
  Report Type: 
  Country: None (occurrence: None)
  Receive Date: 20090605
  Receipt Date: 20090527
  Transmission Date: 20091009
  Serious: Yes (Other)
  Sender: FDA-Public Use
  Company Number: PHHY2009BR20895

PATIENT
  Sex: Male

DRUGS (1)
  1. EXFORGE [Suspect]
     Dosage: 320/10 MG/DAY
     Dates: start: 20090101

REACTIONS (2)
  - GINGIVAL BLEEDING [None]
  - GINGIVAL SWELLING [None]
